FAERS Safety Report 5743936-1 (Version None)
Quarter: 2008Q2

REPORT INFORMATION
  Report Type: 
  Country: None (occurrence: None)
  Receive Date: 20080520
  Receipt Date: 20080507
  Transmission Date: 20081010
  Serious: No
  Sender: FDA-Public Use
  Company Number: US-PFIZER INC-2008013882

PATIENT
  Sex: Male
  Weight: 101 kg

DRUGS (8)
  1. LYRICA [Suspect]
     Indication: NEUROPATHY PERIPHERAL
     Route: 048
  2. ACETYLSALICYLIC ACID SRT [Concomitant]
  3. LEVAQUIN [Concomitant]
  4. PERCOCET [Concomitant]
  5. CYMBALTA [Concomitant]
  6. ZOCOR [Concomitant]
  7. LEVOXYL [Concomitant]
  8. OMEPRAZOLE [Concomitant]

REACTIONS (1)
  - NO ADVERSE EVENT [None]
